FAERS Safety Report 7476058-2 (Version None)
Quarter: 2011Q2

REPORT INFORMATION
  Report Type: 
  Country: None (occurrence: None)
  Receive Date: 20110512
  Receipt Date: 20110504
  Transmission Date: 20111010
  Serious: Yes (Hospitalization, Other)
  Sender: FDA-Public Use
  Company Number: GB-PFIZER INC-2010000746

PATIENT
  Age: 25 Year
  Sex: Male

DRUGS (3)
  1. LANSOPRAZOLE [Suspect]
     Indication: HELICOBACTER INFECTION
     Dosage: UNK
     Route: 048
  2. CLARITHROMYCIN [Suspect]
     Indication: HELICOBACTER INFECTION
     Dosage: UNK
     Route: 048
  3. METRONIDAZOLE [Suspect]
     Indication: HELICOBACTER INFECTION
     Dosage: UNK
     Route: 048

REACTIONS (6)
  - COORDINATION ABNORMAL [None]
  - AGITATION [None]
  - INSOMNIA [None]
  - SWOLLEN TONGUE [None]
  - ATAXIA [None]
  - CONFUSIONAL STATE [None]
